FAERS Safety Report 15080072 (Version 4)
Quarter: 2018Q3

REPORT INFORMATION
  Report Type: Spontaneous
  Country: IT (occurrence: IT)
  Receive Date: 20180627
  Receipt Date: 20180821
  Transmission Date: 20181010
  Serious: Yes (Other)
  Sender: FDA-Public Use
  Company Number: PHHY2018IT029554

PATIENT
  Age: 98 Year
  Sex: Female

DRUGS (7)
  1. PARACETAMOL [Interacting]
     Active Substance: ACETAMINOPHEN
     Dosage: 1000 MG, CYCLIC
     Route: 048
     Dates: start: 20171130
  2. LORAZEPAM. [Suspect]
     Active Substance: LORAZEPAM
     Indication: ANXIETY
     Dosage: 2.5 MG, UNK
     Route: 048
     Dates: start: 20140101, end: 20171130
  3. PARACETAMOL [Interacting]
     Active Substance: ACETAMINOPHEN
     Indication: SPINAL OSTEOARTHRITIS
     Dosage: 1000 MG, CYCLIC
     Route: 048
     Dates: start: 20171101
  4. BISOPROLOL [Suspect]
     Active Substance: BISOPROLOL
     Indication: CORONARY ARTERY DISEASE
     Dosage: 5 MG, QD
     Route: 048
     Dates: start: 20140101
  5. BISOPROLOL [Interacting]
     Active Substance: BISOPROLOL
     Dosage: 5 MG, QD
     Route: 048
     Dates: start: 20171130
  6. RAMIPRIL. [Interacting]
     Active Substance: RAMIPRIL
     Indication: HYPERTENSION
     Dosage: 5 MG, QD
     Route: 048
     Dates: start: 20140101
  7. RAMIPRIL. [Interacting]
     Active Substance: RAMIPRIL
     Dosage: 5 MG, QD
     Route: 048
     Dates: start: 20171130

REACTIONS (1)
  - Cerebrovascular accident [Recovering/Resolving]

NARRATIVE: CASE EVENT DATE: 20171130
